FAERS Safety Report 9529727 (Version 1)
Quarter: 2013Q2

REPORT INFORMATION
  Report Type: Spontaneous
  Country: US (occurrence: None)
  Receive Date: 20130402
  Receipt Date: 20130402
  Transmission Date: 20140414
  Serious: Yes (Hospitalization, Other)
  Sender: FDA-Public Use
  Company Number: RB-49297-2013

PATIENT
  Age: 37 Year
  Sex: Male

DRUGS (1)
  1. SUBOXONE (8 MG, 8 MG) [Suspect]
     Indication: DRUG DEPENDENCE
     Dosage: 24 MG, SUBOXONE FILM SUBLINGUAL
     Dates: start: 2011, end: 201211

REACTIONS (3)
  - Staphylococcal infection [None]
  - Wrong technique in drug usage process [None]
  - Bronchitis [None]
